FAERS Safety Report 24878465 (Version 1)
Quarter: 2025Q1

REPORT INFORMATION
  Report Type: Spontaneous
  Country: CN (occurrence: CN)
  Receive Date: 20250123
  Receipt Date: 20250123
  Transmission Date: 20250408
  Serious: Yes (Hospitalization)
  Sender: PFIZER
  Company Number: CN-PFIZER INC-PV202500007833

PATIENT
  Age: 74 Year
  Sex: Male
  Weight: 55 kg

DRUGS (3)
  1. CYTARABINE [Suspect]
     Active Substance: CYTARABINE
     Indication: Neoplasm malignant
     Dosage: 0.2 G, 1X/DAY
     Route: 041
     Dates: start: 20250101, end: 20250107
  2. CYTARABINE [Suspect]
     Active Substance: CYTARABINE
     Indication: Acute myeloid leukaemia
  3. IDARUBICIN HYDROCHLORIDE [Suspect]
     Active Substance: IDARUBICIN HYDROCHLORIDE
     Indication: Acute myeloid leukaemia
     Dosage: 10 MG, 1X/DAY
     Route: 041
     Dates: start: 20250103, end: 20250103

REACTIONS (6)
  - White blood cell count decreased [Unknown]
  - Platelet count decreased [Unknown]
  - Haemoglobin decreased [Unknown]
  - Red blood cell count decreased [Unknown]
  - Blood bilirubin unconjugated increased [Unknown]
  - Off label use [Unknown]

NARRATIVE: CASE EVENT DATE: 20250101
